FAERS Safety Report 6109204-3 (Version None)
Quarter: 2009Q1

REPORT INFORMATION
  Report Type: 
  Country: None (occurrence: None)
  Receive Date: 20090310
  Receipt Date: 20090224
  Transmission Date: 20090719
  Serious: Yes (Other)
  Sender: FDA-Public Use
  Company Number: PHEH2009US01214

PATIENT
  Sex: Female

DRUGS (2)
  1. DIOVAN HCT [Suspect]
     Dosage: 160 VAL/ 12.5 HCT MG
  2. DIOVAN HCT [Suspect]
     Dosage: UNK
     Dates: start: 20090101

REACTIONS (2)
  - ANGIOEDEMA [None]
  - FOOD ALLERGY [None]
